FAERS Safety Report 6293625-2 (Version None)
Quarter: 2009Q3

REPORT INFORMATION
  Report Type: 
  Country: None (occurrence: None)
  Receive Date: 20090729
  Receipt Date: 20090515
  Transmission Date: 20100115
  Serious: Yes (Other)
  Sender: FDA-Public Use
  Company Number: 2009EU002261

PATIENT

DRUGS (3)
  1. PROGRAF [Suspect]
     Indication: RENAL TRANSPLANT
     Dosage: /D
  2. CAMPATH [Concomitant]
  3. PREDNISOLONE [Concomitant]

REACTIONS (1)
  - PULMONARY EMBOLISM [None]
